FAERS Safety Report 7810773-3 (Version None)
Quarter: 2011Q4

REPORT INFORMATION
  Report Type: 
  Country: None (occurrence: None)
  Receive Date: 20111011
  Receipt Date: 20110922
  Transmission Date: 20120403
  Serious: Yes (Congenital Anomaly)
  Sender: FDA-Public Use
  Company Number: 1000024490

PATIENT
  Sex: Male
  Weight: 3.57 kg

DRUGS (2)
  1. FOLIO (FOLIC ACID) (FOLIC ACID) [Concomitant]
  2. CITALOPRAM HYDROBROMIDE [Suspect]
     Dosage: 20 MG (20 MG,1 IN 1 D),TRANSPLACENTAL
     Route: 064

REACTIONS (5)
  - UMBILICAL CORD AROUND NECK [None]
  - HAEMANGIOMA CONGENITAL [None]
  - MATERNAL DRUGS AFFECTING FOETUS [None]
  - ATRIAL SEPTAL DEFECT [None]
  - CAESAREAN SECTION [None]
